FAERS Safety Report 25634270 (Version 1)
Quarter: 2025Q3

REPORT INFORMATION
  Report Type: Spontaneous
  Country: CN (occurrence: CN)
  Receive Date: 20250801
  Receipt Date: 20250801
  Transmission Date: 20251020
  Serious: Yes (Other)
  Sender: MERCK SHARP & DOHME LLC
  Company Number: CN-009507513-2313142

PATIENT
  Age: 75 Year
  Sex: Male
  Weight: 45 kg

DRUGS (1)
  1. INVANZ [Suspect]
     Active Substance: ERTAPENEM SODIUM
     Indication: Pneumonia bacterial
     Dosage: ALSO REPORTED THAT DISCONTINUED AT 11:00 PM.
     Route: 041
     Dates: start: 20250723, end: 20250723

REACTIONS (3)
  - Pneumonia bacterial [Unknown]
  - Generalised tonic-clonic seizure [Recovering/Resolving]
  - Blood pressure increased [Unknown]

NARRATIVE: CASE EVENT DATE: 20250701
